FAERS Safety Report 17047304 (Version 2)
Quarter: 2020Q1

REPORT INFORMATION
  Report Type: Spontaneous
  Country: FR (occurrence: FR)
  Receive Date: 20191119
  Receipt Date: 20200205
  Transmission Date: 20200409
  Serious: Yes (Other)
  Sender: FDA-Public Use
  Company Number: NVSC2019FR037062

PATIENT
  Age: 55 Year
  Sex: Female

DRUGS (4)
  1. COBIMETINIB. [Suspect]
     Active Substance: COBIMETINIB
     Indication: ERDHEIM-CHESTER DISEASE
  2. DABRAFENIB [Suspect]
     Active Substance: DABRAFENIB
     Indication: ERDHEIM-CHESTER DISEASE
  3. COBIMETINIB. [Suspect]
     Active Substance: COBIMETINIB
     Indication: BRAF GENE MUTATION
     Dosage: UNK
     Route: 065
  4. DABRAFENIB [Suspect]
     Active Substance: DABRAFENIB
     Indication: BRAF GENE MUTATION
     Dosage: UNK
     Route: 065

REACTIONS (1)
  - Cutaneous sarcoidosis [Unknown]
